FAERS Safety Report 16470730 (Version 1)
Quarter: 2019Q2

REPORT INFORMATION
  Report Type: Spontaneous
  Country: US (occurrence: US)
  Receive Date: 20190624
  Receipt Date: 20190624
  Transmission Date: 20190711
  Serious: No
  Sender: FDA-Public Use
  Company Number: US-CATALYST PHARMACEUTICALS, INC-2019CAT00112

PATIENT
  Sex: Female
  Weight: 42.63 kg

DRUGS (16)
  1. FIRDAPSE [Suspect]
     Active Substance: AMIFAMPRIDINE
     Dosage: 15 MG, EVERY 5 HOURS (NOT TO EXCEED MORE THAN 80 MG IN 24 HOURS)
     Route: 048
     Dates: start: 201904
  2. POLY-IRON [Concomitant]
     Active Substance: IRON
  3. IMODIUM [Concomitant]
     Active Substance: LOPERAMIDE HYDROCHLORIDE
  4. CEPHALEXIN. [Concomitant]
     Active Substance: CEPHALEXIN
     Dosage: 500 MG, 4X/DAY
  5. LOSARTAN. [Concomitant]
     Active Substance: LOSARTAN
     Dosage: 50 MG, 1X/DAY
  6. GLYCOPYRROLATE. [Concomitant]
     Active Substance: GLYCOPYRROLATE
     Dosage: 1 MG, AS NEEDED
  7. BUDESONIDE INHALER [Concomitant]
     Dosage: UNK, 2X/DAY
     Route: 055
  8. VITAMIN E [Concomitant]
     Active Substance: .ALPHA.-TOCOPHEROL
  9. PRILOSEC OTC [Concomitant]
     Active Substance: OMEPRAZOLE MAGNESIUM
     Dosage: 20 MG, 1X/DAY
  10. VITAMIN D3 [Concomitant]
     Active Substance: CHOLECALCIFEROL
  11. FIRDAPSE [Suspect]
     Active Substance: AMIFAMPRIDINE
     Indication: MYASTHENIC SYNDROME
     Dosage: 10 MG FOR 3 TOTAL DOSES
     Route: 048
     Dates: start: 20190414, end: 201904
  12. VITAMIN C [Concomitant]
     Active Substance: ASCORBIC ACID
  13. BONE UP (CALCIUM SUPPLEMENT) [Concomitant]
  14. PYRIDOSTIGMINE [Concomitant]
     Active Substance: PYRIDOSTIGMINE
     Dosage: 60 MG, 5X/DAY
     Dates: start: 2001
  15. PERFOROMIST INHALER [Concomitant]
     Dosage: UNK, 2X/DAY
     Route: 055
  16. ZINC. [Concomitant]
     Active Substance: ZINC

REACTIONS (7)
  - Asthenia [Not Recovered/Not Resolved]
  - Therapeutic product effect decreased [Not Recovered/Not Resolved]
  - Feeling abnormal [Not Recovered/Not Resolved]
  - Weight decreased [Not Recovered/Not Resolved]
  - Therapeutic response delayed [Not Recovered/Not Resolved]
  - Gait disturbance [Not Recovered/Not Resolved]
  - Lethargy [Not Recovered/Not Resolved]

NARRATIVE: CASE EVENT DATE: 2019
